FAERS Safety Report 7624907 (Version 2)
Quarter: 2012Q4

REPORT INFORMATION
  Report Type: 
  Country: GB (occurrence: GB)
  Receive Date: 20101012
  Receipt Date: 20120911
  Transmission Date: 20130627
  Serious: Yes (Death, Other)
  Sender: FDA-Public Use
  Company Number: GB-RANBAXY-2010RR-38675

PATIENT
  Sex: Female

DRUGS (2)
  1. GABAPENTIN [Suspect]
     Indication: EPILEPSY
     Dosage: UNK
     Route: 065
  2. VALPROIC ACID [Suspect]
     Indication: EPILEPSY
     Dosage: 2500 mg/day
     Route: 065

REACTIONS (1)
  - Exposure during pregnancy [Unknown]
